FAERS Safety Report 9067584 (Version 1)
Quarter: 2013Q1

REPORT INFORMATION
  Report Type: Spontaneous
  Country: US (occurrence: US)
  Receive Date: 20130206
  Receipt Date: 20130206
  Transmission Date: 20140127
  Serious: Yes (Hospitalization)
  Sender: FDA-Public Use
  Company Number: US-ASTRAZENECA-2013SE07048

PATIENT
  Age: 38 Year
  Sex: Female

DRUGS (1)
  1. SEROQUEL UNSPECIFIED [Suspect]
     Route: 048

REACTIONS (6)
  - Post procedural complication [Unknown]
  - Hallucination [Unknown]
  - Mental impairment [Unknown]
  - Abnormal behaviour [Unknown]
  - Drug withdrawal syndrome [Unknown]
  - Drug dose omission [Unknown]
